FAERS Safety Report 20693963 (Version 1)
Quarter: 2022Q2

REPORT INFORMATION
  Report Type: Spontaneous
  Country: PL (occurrence: PL)
  Receive Date: 20220411
  Receipt Date: 20220411
  Transmission Date: 20220720
  Serious: Yes (Other)
  Sender: FDA-Public Use
  Company Number: PL-Accord-259687

PATIENT
  Age: 77 Year
  Sex: Female

DRUGS (2)
  1. OXALIPLATIN [Suspect]
     Active Substance: OXALIPLATIN
     Indication: Gastrointestinal adenocarcinoma
  2. CAPECITABINE [Concomitant]
     Active Substance: CAPECITABINE
     Indication: Gastrointestinal adenocarcinoma

REACTIONS (3)
  - Stress cardiomyopathy [Unknown]
  - Cardiac failure acute [Unknown]
  - Off label use [Unknown]
